FAERS Safety Report 9248964 (Version 1)
Quarter: 2013Q1

REPORT INFORMATION
  Report Type: Spontaneous
  Country: US (occurrence: None)
  Receive Date: 20130305
  Receipt Date: 20130305
  Transmission Date: 20140127
  Serious: Yes (Hospitalization, Other)
  Sender: FDA-Public Use
  Company Number: 163-21880-12100274

PATIENT
  Age: 69 Year
  Sex: Male
  Weight: 68.04 kg

DRUGS (6)
  1. REVLIMID [Suspect]
     Indication: PLASMA CELL MYELOMA
     Dosage: 10MG, 1 IN 1 D, PO
     Route: 048
     Dates: start: 20060801
  2. BENDAMUSTINE (BENDAMUSTINE) (BENDAMUSTINE) [Concomitant]
  3. DEXAMETHASONE (DEXAMETHASONE) [Concomitant]
  4. NEXIUM [Concomitant]
  5. OXYCODONE (OXYCODONE) [Concomitant]
  6. POTASSIUM (POTASSIUM) [Concomitant]

REACTIONS (5)
  - Lethargy [None]
  - White blood cell count abnormal [None]
  - Platelet disorder [None]
  - Haemoglobin abnormal [None]
  - Diarrhoea [None]
